FAERS Safety Report 16113828 (Version 5)
Quarter: 2019Q3

REPORT INFORMATION
  Report Type: Report from Study
  Country: FR (occurrence: FR)
  Receive Date: 20190325
  Receipt Date: 20190806
  Transmission Date: 20191004
  Serious: Yes (Hospitalization)
  Sender: FDA-Public Use
  Company Number: FR-EISAI MEDICAL RESEARCH-EC-2019-053926

PATIENT
  Age: 70 Year
  Sex: Male
  Weight: 84 kg

DRUGS (11)
  1. LASILIX [Concomitant]
     Active Substance: FUROSEMIDE
  2. LENVATINIB [Suspect]
     Active Substance: LENVATINIB
     Route: 048
     Dates: start: 20190328, end: 20190721
  3. IALUSET CREAM [Concomitant]
  4. PEMBROLIZUMAB. [Suspect]
     Active Substance: PEMBROLIZUMAB
     Indication: HEPATOCELLULAR CARCINOMA
     Route: 041
     Dates: start: 20190103, end: 20190731
  5. JANUMET [Concomitant]
     Active Substance: METFORMIN HYDROCHLORIDE\SITAGLIPTIN PHOSPHATE
  6. LENVATINIB [Suspect]
     Active Substance: LENVATINIB
     Indication: HEPATOCELLULAR CARCINOMA
     Route: 048
     Dates: start: 20190103, end: 20190327
  7. CHLORIDE POTASSIUM [Concomitant]
  8. SMECTA [Concomitant]
     Active Substance: MONTMORILLONITE
  9. LEVOTHYROX [Concomitant]
     Active Substance: LEVOTHYROXINE
  10. KETOPROFENE [Concomitant]
     Active Substance: KETOPROFEN
  11. CITRATE OF BETAINE [Concomitant]

REACTIONS (3)
  - Diarrhoea [Recovered/Resolved]
  - Prostatic obstruction [Recovered/Resolved]
  - Hepatic encephalopathy [Recovered/Resolved]

NARRATIVE: CASE EVENT DATE: 20190321
